FAERS Safety Report 4972465-8 (Version None)
Quarter: 2006Q2

REPORT INFORMATION
  Report Type: 
  Country: None (occurrence: None)
  Receive Date: 20060413
  Receipt Date: 20051019
  Transmission Date: 20061013
  Serious: Yes (Hospitalization, Disabling, Other)
  Sender: FDA-Public Use
  Company Number: US-MERCK-0510USA08238

PATIENT
  Age: 51 Year
  Sex: Female
  Weight: 68 kg

DRUGS (10)
  1. VIOXX [Suspect]
     Indication: OSTEOARTHRITIS
     Route: 048
     Dates: start: 20010601, end: 20040901
  2. NEURONTIN [Concomitant]
     Route: 065
     Dates: start: 20010427
  3. IBUPROFEN [Concomitant]
     Route: 065
     Dates: start: 20010727, end: 20030101
  4. PAXIL [Concomitant]
     Route: 065
     Dates: start: 20010330, end: 20030101
  5. VERAPAMIL MSD LP [Concomitant]
     Route: 048
  6. HYDROCHLOROTHIAZIDE [Concomitant]
     Route: 065
  7. DELTASONE [Concomitant]
     Route: 065
  8. ZESTRIL [Concomitant]
     Route: 065
     Dates: start: 20000509
  9. METOPROLOL [Concomitant]
     Route: 065
  10. CLARITIN [Concomitant]
     Route: 065

REACTIONS (6)
  - ABASIA [None]
  - ARTHRITIS [None]
  - CEREBROVASCULAR ACCIDENT [None]
  - DIABETES MELLITUS [None]
  - MYOCARDIAL INFARCTION [None]
  - THYROID DISORDER [None]
